FAERS Safety Report 25198781 (Version 2)
Quarter: 2025Q2

REPORT INFORMATION
  Report Type: Report from Study
  Country: FR (occurrence: FR)
  Receive Date: 20250415
  Receipt Date: 20250428
  Transmission Date: 20250716
  Serious: Yes (Death, Hospitalization, Other)
  Sender: NOVARTIS
  Company Number: FR-002147023-NVSC2025FR056797

PATIENT
  Sex: Female
  Weight: 84 kg

DRUGS (1)
  1. KISQALI [Suspect]
     Active Substance: RIBOCICLIB SUCCINATE
     Indication: Hormone receptor positive HER2 negative breast cancer
     Dosage: 600 MG, QD
     Route: 048
     Dates: start: 20240914

REACTIONS (5)
  - Hormone receptor positive HER2 negative breast cancer [Fatal]
  - Malignant neoplasm progression [Fatal]
  - General physical health deterioration [Recovered/Resolved]
  - Metastases to bone [Unknown]
  - Spinal pain [Unknown]

NARRATIVE: CASE EVENT DATE: 20250130
